FAERS Safety Report 5636449-9 (Version None)
Quarter: 2008Q1

REPORT INFORMATION
  Report Type: 
  Country: None (occurrence: None)
  Receive Date: 20080225
  Receipt Date: 20080221
  Transmission Date: 20080703
  Serious: Yes (Life-Threatening, Hospitalization)
  Sender: FDA-Public Use
  Company Number: JP-BRISTOL-MYERS SQUIBB COMPANY-14078448

PATIENT
  Age: 61 Year
  Sex: Female

DRUGS (6)
  1. TAXOL [Suspect]
     Indication: NON-SMALL CELL LUNG CANCER
     Route: 041
     Dates: start: 20070801, end: 20070829
  2. PARAPLATIN [Suspect]
     Indication: NON-SMALL CELL LUNG CANCER
     Route: 041
     Dates: start: 20070801, end: 20070829
  3. ANTIHYPERTENSIVE [Concomitant]
  4. AMLODIN [Concomitant]
     Route: 048
  5. SELBEX [Concomitant]
     Route: 048
  6. MAGMITT [Concomitant]
     Route: 048

REACTIONS (2)
  - PULMONARY EMBOLISM [None]
  - PULMONARY THROMBOSIS [None]
